FAERS Safety Report 20553603 (Version 1)
Quarter: 2022Q1

REPORT INFORMATION
  Report Type: Spontaneous
  Country: US (occurrence: US)
  Receive Date: 20220304
  Receipt Date: 20220304
  Transmission Date: 20220424
  Serious: Yes (Other)
  Sender: FDA-Public Use
  Company Number: US-PERRIGO-22US003461

PATIENT
  Age: 43 Year
  Sex: Female
  Weight: 13.605 kg

DRUGS (1)
  1. LEVONORGESTREL [Suspect]
     Active Substance: LEVONORGESTREL
     Indication: Contraception
     Dosage: 1.53 MG, SINGLE
     Route: 048
     Dates: start: 20220228, end: 20220228

REACTIONS (5)
  - Cystitis [Recovered/Resolved]
  - Constipation [Recovered/Resolved]
  - Feeling cold [Recovering/Resolving]
  - Dizziness [Recovered/Resolved]
  - Nausea [Recovered/Resolved]

NARRATIVE: CASE EVENT DATE: 20220228
